FAERS Safety Report 4894707-X (Version None)
Quarter: 2006Q1

REPORT INFORMATION
  Report Type: 
  Country: None (occurrence: None)
  Receive Date: 20060126
  Receipt Date: 20060126
  Transmission Date: 20060701
  Serious: Yes (Hospitalization)
  Sender: FDA-Public Use
  Company Number: None

PATIENT
  Age: 37 Year
  Sex: Female
  Weight: 54.4316 kg

DRUGS (3)
  1. HISTACOL LA [Suspect]
     Indication: HYPERSENSITIVITY
     Dosage: ONE Q PM
     Dates: start: 20060123
  2. ALLEGRA [Concomitant]
  3. BIRTH CONTROL PILLS [Concomitant]

REACTIONS (6)
  - DRY MOUTH [None]
  - MOVEMENT DISORDER [None]
  - MYDRIASIS [None]
  - PARAESTHESIA [None]
  - TACHYCARDIA [None]
  - VISION BLURRED [None]
